FAERS Safety Report 23084771 (Version 1)
Quarter: 2023Q4

REPORT INFORMATION
  Report Type: Spontaneous
  Country: FR (occurrence: FR)
  Receive Date: 20231019
  Receipt Date: 20231019
  Transmission Date: 20240110
  Serious: Yes (Death)
  Sender: FDA-Public Use
  Company Number: FR-AFSSAPS-LL2023001096

PATIENT
  Age: 76 Year
  Sex: Female
  Weight: 60.8 kg

DRUGS (1)
  1. NOREPINEPHRINE [Suspect]
     Active Substance: NOREPINEPHRINE
     Indication: Septic shock
     Dosage: 6 MILLIGRAM, UNK
     Route: 042
     Dates: start: 20230416

REACTIONS (2)
  - Necrosis [Fatal]
  - Amputation [Fatal]

NARRATIVE: CASE EVENT DATE: 20230425
